FAERS Safety Report 14312201 (Version 2)
Quarter: 2018Q1

REPORT INFORMATION
  Report Type: Spontaneous
  Country: FR (occurrence: FR)
  Receive Date: 20171221
  Receipt Date: 20180130
  Transmission Date: 20180509
  Serious: Yes (Other)
  Sender: FDA-Public Use
  Company Number: FR-MERCK KGAA-2037533

PATIENT
  Age: 84 Year
  Sex: Female

DRUGS (12)
  1. ESOMEPRAZOLE [Concomitant]
     Active Substance: ESOMEPRAZOLE
  2. ACTONEL [Concomitant]
     Active Substance: RISEDRONATE SODIUM
  3. CALPEROS D3(LEKOVIT CA) [Concomitant]
  4. UVEDOSE [Concomitant]
     Active Substance: CHOLECALCIFEROL
  5. SERETIDE DISCUS(SERETIDE) [Concomitant]
  6. AMOXICILLINE [Concomitant]
     Active Substance: AMOXICILLIN
  7. NOVOTHYROX [Suspect]
     Active Substance: LEVOTHYROXINE SODIUM
     Indication: BASEDOW^S DISEASE
     Dates: start: 2017
  8. ADVIL [Concomitant]
     Active Substance: IBUPROFEN
  9. SINGULAIR [Concomitant]
     Active Substance: MONTELUKAST SODIUM
  10. DOLIPRANE [Concomitant]
     Active Substance: ACETAMINOPHEN
  11. MIOREL (THIOCOLCHICOSIDE) [Concomitant]
     Active Substance: THIOCOLCHICOSIDE
  12. AERIUS [Concomitant]
     Active Substance: DESLORATADINE

REACTIONS (9)
  - Tendon disorder [Not Recovered/Not Resolved]
  - Visual impairment [Not Recovered/Not Resolved]
  - Dry age-related macular degeneration [Not Recovered/Not Resolved]
  - Vertigo [None]
  - Dizziness [Not Recovered/Not Resolved]
  - Tinnitus [None]
  - Fatigue [None]
  - Muscle spasms [None]
  - Asthenia [Not Recovered/Not Resolved]

NARRATIVE: CASE EVENT DATE: 2017
